FAERS Safety Report 6489950-2 (Version None)
Quarter: 2009Q4

REPORT INFORMATION
  Report Type: 
  Country: None (occurrence: None)
  Receive Date: 20091211
  Receipt Date: 20091201
  Transmission Date: 20100525
  Serious: Yes (Other)
  Sender: FDA-Public Use
  Company Number: PHHY2009CA53074

PATIENT

DRUGS (1)
  1. CLOZARIL [Suspect]
     Dosage: UNK
     Dates: end: 20091126

REACTIONS (1)
  - GASTROINTESTINAL DISORDER [None]
